FAERS Safety Report 4826225-9 (Version None)
Quarter: 2005Q4

REPORT INFORMATION
  Report Type: 
  Country: None (occurrence: None)
  Receive Date: 20051014
  Receipt Date: 20050729
  Transmission Date: 20060501
  Serious: No
  Sender: FDA-Public Use
  Company Number: 2005SP002128

PATIENT
  Age: 48 Year
  Sex: Male
  Weight: 86.1834 kg

DRUGS (3)
  1. LUNESTA [Suspect]
     Indication: SLEEP DISORDER
     Dosage: 3 MG;HS;ORAL
     Route: 048
     Dates: start: 20050601
  2. SONATA [Concomitant]
  3. CYMBALTA [Concomitant]

REACTIONS (1)
  - CONTUSION [None]
